FAERS Safety Report 10172387 (Version 1)
Quarter: 2014Q2

REPORT INFORMATION
  Report Type: Report from Study
  Country: US (occurrence: US)
  Receive Date: 20140515
  Receipt Date: 20140515
  Transmission Date: 20141212
  Serious: No
  Sender: FDA-Public Use
  Company Number: US-ALEXION-A201401799

PATIENT
  Sex: 0

DRUGS (2)
  1. SOLIRIS [Suspect]
     Indication: HAEMOLYTIC URAEMIC SYNDROME
     Dosage: 1200 MG,Q2W
     Route: 042
     Dates: start: 20120817
  2. CHEMOTHERAPEUTICS [Concomitant]
     Indication: OVARIAN CANCER
     Route: 065

REACTIONS (1)
  - Pigmentation disorder [Unknown]
